FAERS Safety Report 4450926-8 (Version None)
Quarter: 2004Q3

REPORT INFORMATION
  Report Type: 
  Country: None (occurrence: None)
  Receive Date: 20040916
  Receipt Date: 20030425
  Transmission Date: 20050211
  Serious: Yes (Other)
  Sender: FDA-Public Use
  Company Number: US-BRISTOL-MYERS SQUIBB COMPANY-12258604

PATIENT
  Age: 26 Year
  Sex: Female

DRUGS (9)
  1. STADOL [Suspect]
     Indication: MIGRAINE
     Route: 030
     Dates: start: 19860101, end: 19930101
  2. STADOL [Suspect]
     Indication: PAIN
     Route: 030
     Dates: start: 19860101, end: 19930101
  3. STADOL [Suspect]
     Indication: MIGRAINE
     Route: 045
     Dates: start: 19940909
  4. ALPRAZOLAM [Concomitant]
  5. ULTRAM [Concomitant]
  6. HYDROCODONE + ACETAMINOPHEN [Concomitant]
  7. DIAZEPAM [Concomitant]
  8. CYCLOBENZAPRINE HCL [Concomitant]
  9. MEPERGAN FORTIS [Concomitant]

REACTIONS (1)
  - DEPENDENCE [None]
